FAERS Safety Report 8432214-8 (Version None)
Quarter: 2012Q2

REPORT INFORMATION
  Report Type: 
  Country: None (occurrence: None)
  Receive Date: 20120613
  Receipt Date: 20120601
  Transmission Date: 20120825
  Serious: Yes (Hospitalization)
  Sender: FDA-Public Use
  Company Number: US-BRISTOL-MYERS SQUIBB COMPANY-16659203

PATIENT
  Age: 82 Year
  Sex: Female

DRUGS (2)
  1. COUMADIN [Suspect]
  2. PRADAXA [Suspect]
     Indication: ATRIAL FIBRILLATION
     Dosage: CAPSULE
     Route: 048

REACTIONS (1)
  - CEREBROVASCULAR ACCIDENT [None]
